FAERS Safety Report 4891476-4 (Version None)
Quarter: 2005Q4

REPORT INFORMATION
  Report Type: 
  Country: None (occurrence: None)
  Receive Date: 20051220
  Receipt Date: 20050816
  Transmission Date: 20060501
  Serious: Yes (Other)
  Sender: FDA-Public Use
  Company Number: 414689

PATIENT
  Age: 69 Year
  Sex: Female

DRUGS (5)
  1. BONIVA [Suspect]
     Indication: OSTEOPOROSIS
     Dosage: ORAL
     Route: 048
     Dates: start: 20050812, end: 20050812
  2. COZAAR [Concomitant]
  3. SYNTHROID [Concomitant]
  4. CENTRUM (MINERALS NOS/MULTIVITAMINS NOS) [Concomitant]
  5. MAXZIDE [Concomitant]

REACTIONS (5)
  - ABDOMINAL PAIN [None]
  - BONE PAIN [None]
  - DIARRHOEA [None]
  - MYALGIA [None]
  - PYREXIA [None]
